FAERS Safety Report 14600272 (Version 2)
Quarter: 2018Q1

REPORT INFORMATION
  Report Type: Spontaneous
  Country: DE (occurrence: DE)
  Receive Date: 20180305
  Receipt Date: 20180308
  Transmission Date: 20180509
  Serious: Yes (Hospitalization, Other)
  Sender: FDA-Public Use
  Company Number: DE-PFIZER INC-2017416472

PATIENT
  Age: 75 Year
  Sex: Male
  Weight: 63.8 kg

DRUGS (15)
  1. TILIDIN COMP [Interacting]
     Active Substance: NALOXONE HYDROCHLORIDE\TILIDINE HYDROCHLORIDE
     Indication: POST HERPETIC NEURALGIA
     Dosage: 1 DF, 1X/DAY (50/4 MG RET.)
     Route: 048
     Dates: start: 20170724, end: 20170811
  2. FOLSAEURE [Concomitant]
     Active Substance: FOLIC ACID
     Dosage: 1 DF, EVERY 3 DAYS
     Route: 048
  3. PREGABALIN. [Interacting]
     Active Substance: PREGABALIN
     Dosage: 100 MG, 1X/DAY
     Route: 048
  4. ACICLOVIR [Interacting]
     Active Substance: ACYCLOVIR
     Indication: HERPES ZOSTER
     Dosage: 4000 MG, 1X/DAY(QD)
     Route: 048
     Dates: start: 20170704, end: 20170711
  5. RAMIPRIL. [Concomitant]
     Active Substance: RAMIPRIL
     Dosage: 5 MG, 1X/DAY
     Route: 048
  6. VARDENAFIL [Concomitant]
     Active Substance: VARDENAFIL
     Dosage: 5.93 MG, AS NEEDED
     Route: 048
  7. VITAMIN B6 [Concomitant]
     Active Substance: PYRIDOXINE HYDROCHLORIDE
     Dosage: 1 DF, EVERY 3 DAYS
     Route: 048
  8. VITAMIN B12 [Concomitant]
     Active Substance: CYANOCOBALAMIN
     Dosage: 1 DF, EVERY 3 DAYS
     Route: 048
  9. ZOPICLON [Interacting]
     Active Substance: ZOPICLONE
     Dosage: 3.75 MG, 1X/DAY
     Route: 048
  10. COLECALCIFEROL [Concomitant]
     Active Substance: CHOLECALCIFEROL
     Dosage: 1 IU, WEEKLY
  11. SALBUTAMOL [Concomitant]
     Active Substance: ALBUTEROL
     Dosage: 0.12 MG, 3 X EVERY 2 DAYS
     Route: 055
  12. PANTOPRAZOLE [Suspect]
     Active Substance: PANTOPRAZOLE
     Dosage: 40 MG, QD
     Route: 048
  13. METAMIZOLE [Interacting]
     Active Substance: METAMIZOLE
     Indication: POST HERPETIC NEURALGIA
     Dosage: 1500 MG EVERY 2 DAYS (500 MG  3 X EVERY 2 DAYS)
     Route: 048
     Dates: start: 20170717, end: 20170811
  14. METAMIZOLE [Concomitant]
     Active Substance: METAMIZOLE
     Dosage: 3 G, QD
     Route: 048
     Dates: start: 20170811, end: 20170814
  15. ASPIRIN. [Concomitant]
     Active Substance: ASPIRIN
     Dosage: 100 MG, 1X/DAY
     Route: 048

REACTIONS (7)
  - Hepatic enzyme increased [Recovering/Resolving]
  - Food interaction [Recovering/Resolving]
  - Hepatic cyst [Recovering/Resolving]
  - Cholestasis [Recovering/Resolving]
  - Accessory spleen [Recovering/Resolving]
  - Transaminases increased [Recovering/Resolving]
  - Cholelithiasis [Recovering/Resolving]

NARRATIVE: CASE EVENT DATE: 20170801
